FAERS Safety Report 9669802 (Version 2)
Quarter: 2014Q1

REPORT INFORMATION
  Report Type: Spontaneous
  Country: US (occurrence: US)
  Receive Date: 20131105
  Receipt Date: 20140326
  Transmission Date: 20141002
  Serious: No
  Sender: FDA-Public Use
  Company Number: US-009507513-1310USA013465

PATIENT
  Age: 18 Year
  Sex: Female
  Weight: 53.97 kg

DRUGS (1)
  1. NEXPLANON [Suspect]
     Indication: CONTRACEPTION
     Dosage: 1 ROD
     Route: 059
     Dates: start: 20130930

REACTIONS (5)
  - Device deployment issue [Unknown]
  - Device dislocation [Unknown]
  - Device difficult to use [Unknown]
  - Medical device complication [Unknown]
  - Maternal exposure during pregnancy [Unknown]
